FAERS Safety Report 5604830-X (Version None)
Quarter: 2008Q1

REPORT INFORMATION
  Report Type: 
  Country: None (occurrence: None)
  Receive Date: 20080128
  Receipt Date: 20080115
  Transmission Date: 20080703
  Serious: Yes (Other)
  Sender: FDA-Public Use
  Company Number: NL-GENENTECH-254605

PATIENT
  Sex: Female
  Weight: 65 kg

DRUGS (7)
  1. HERCEPTIN [Suspect]
     Indication: MONOCLONAL ANTIBODY UNCONJUGATED THERAPY
     Dosage: 450 MG, Q3W
     Route: 042
     Dates: start: 20070503
  2. VITAMIN B [Concomitant]
     Indication: DRUG USE FOR UNKNOWN INDICATION
     Dosage: UNK, UNK
     Dates: start: 20071101
  3. ARIMIDEX [Concomitant]
     Indication: DRUG USE FOR UNKNOWN INDICATION
     Dosage: UNK, UNK
     Dates: start: 20070901
  4. CALCICHEW [Concomitant]
     Indication: DRUG USE FOR UNKNOWN INDICATION
     Dosage: UNK, UNK
     Dates: start: 20070901
  5. CELERY [Concomitant]
     Indication: DRUG USE FOR UNKNOWN INDICATION
     Dosage: UNK, UNK
     Dates: start: 20070701
  6. CENTRUM [Concomitant]
     Indication: DRUG USE FOR UNKNOWN INDICATION
     Dosage: UNK, UNK
     Dates: start: 20070101
  7. ASCORBIC ACID [Concomitant]
     Indication: DRUG USE FOR UNKNOWN INDICATION
     Dosage: UNK, UNK
     Dates: start: 20070101

REACTIONS (1)
  - SKIN DISORDER [None]
